FAERS Safety Report 10155178 (Version 1)
Quarter: 2014Q2

REPORT INFORMATION
  Report Type: Spontaneous
  Country: CH (occurrence: CH)
  Receive Date: 20140506
  Receipt Date: 20140506
  Transmission Date: 20141212
  Serious: Yes (Hospitalization)
  Sender: FDA-Public Use
  Company Number: CH-PFIZER INC-2014123104

PATIENT
  Age: 88 Year
  Sex: Male

DRUGS (9)
  1. CORDARONE [Suspect]
     Dosage: 200 MG, DAILY
     Route: 048
     Dates: start: 2009, end: 20140319
  2. AZITHROMYCIN [Interacting]
     Dosage: UNK
     Route: 048
     Dates: start: 20140312, end: 20140314
  3. METOLAZONE [Suspect]
     Dosage: 5 MG, DAILY
     Route: 048
     Dates: end: 20140319
  4. PLAVIX [Concomitant]
     Dosage: UNK
  5. DIOVAN [Concomitant]
     Dosage: UNK
     Dates: end: 20140319
  6. PRAVALOTIN [Concomitant]
     Dosage: UNK
  7. ZOLPIDEM [Concomitant]
     Dosage: UNK
  8. SERETIDE [Concomitant]
     Dosage: UNK
  9. SINGULAIR [Concomitant]
     Dosage: UNK

REACTIONS (5)
  - Drug interaction [Recovered/Resolved]
  - Electrocardiogram QT prolonged [Recovered/Resolved]
  - Torsade de pointes [Recovered/Resolved]
  - Presyncope [Recovered/Resolved]
  - Hypokalaemia [Recovered/Resolved]
